FAERS Safety Report 16143953 (Version 2)
Quarter: 2019Q2

REPORT INFORMATION
  Report Type: Spontaneous
  Country: CA (occurrence: CA)
  Receive Date: 20190401
  Receipt Date: 20190424
  Transmission Date: 20190711
  Serious: Yes (Other)
  Sender: FDA-Public Use
  Company Number: CA-PFIZER INC-2019130753

PATIENT
  Age: 26 Year
  Sex: Female

DRUGS (9)
  1. DEPO-PROVERA [Suspect]
     Active Substance: MEDROXYPROGESTERONE ACETATE
     Dosage: 150 MG/ML, UNK
     Dates: start: 20040615
  2. DEPO-PROVERA [Suspect]
     Active Substance: MEDROXYPROGESTERONE ACETATE
     Dosage: 150 MG/ML, UNK
     Dates: start: 20040915
  3. BEXTRA [VALDECOXIB] [Concomitant]
     Dosage: 10 MG, UNK
     Dates: start: 20040312
  4. TRI-CYCLEN [Concomitant]
     Active Substance: ETHINYL ESTRADIOL\NORGESTIMATE
     Dosage: 1 TABLET DAILY FOR 28 DAYS THEN REPEAT CYCLE
     Dates: start: 20041123
  5. DEPO-PROVERA [Suspect]
     Active Substance: MEDROXYPROGESTERONE ACETATE
     Dosage: 150 MG/ML, UNK
     Dates: start: 20031213
  6. TYLENOL WITH CODEINE [Concomitant]
     Active Substance: ACETAMINOPHEN\CODEINE PHOSPHATE
     Dosage: 1 TO 2 TABLETS EVERY 6 HOURS AS NEEDED
     Dates: start: 20040930
  7. APO-TRIMEBUTINE [Concomitant]
     Dosage: 1 TABLET TWICE DAILY AS NEEDED
     Dates: start: 20041201
  8. DEPO-PROVERA [Suspect]
     Active Substance: MEDROXYPROGESTERONE ACETATE
     Dosage: 150 MG/ML, UNK
     Dates: start: 20040306
  9. PERICHLOR [Concomitant]
     Dosage: 0.12 %, UNK
     Dates: start: 20041021

REACTIONS (1)
  - Osteopenia [Not Recovered/Not Resolved]

NARRATIVE: CASE EVENT DATE: 20041216
